FAERS Safety Report 23461903 (Version 4)
Quarter: 2024Q2

REPORT INFORMATION
  Report Type: Spontaneous
  Country: US (occurrence: US)
  Receive Date: 20240131
  Receipt Date: 20240410
  Transmission Date: 20240716
  Serious: No
  Sender: FDA-Public Use
  Company Number: US-PFIZER INC-202200484973

PATIENT
  Age: 2 Year
  Sex: Female
  Weight: 13.152 kg

DRUGS (2)
  1. GENOTROPIN [Suspect]
     Active Substance: SOMATROPIN
     Indication: Hypothalamo-pituitary disorder
     Dosage: 0.4 MG, DAILY
     Dates: start: 20220313
  2. GENOTROPIN [Suspect]
     Active Substance: SOMATROPIN
     Dosage: 0.7 MG
     Dates: start: 2022

REACTIONS (1)
  - Device leakage [Recovered/Resolved]
